FAERS Safety Report 18403116 (Version 1)
Quarter: 2020Q4

REPORT INFORMATION
  Report Type: Report from Study
  Country: US (occurrence: US)
  Receive Date: 20201020
  Receipt Date: 20201020
  Transmission Date: 20210114
  Serious: Yes (Hospitalization, Other)
  Sender: FDA-Public Use
  Company Number: US-GLAXOSMITHKLINE-US2020GSK175944

PATIENT
  Age: 59 Year
  Sex: Male
  Weight: 87.5 kg

DRUGS (2)
  1. BELANTAMAB MAFODOTIN. [Suspect]
     Active Substance: BELANTAMAB MAFODOTIN
     Indication: PLASMA CELL MYELOMA
     Dosage: CYCLE 1 DAY 1
     Dates: start: 20200429
  2. BELANTAMAB MAFODOTIN. [Suspect]
     Active Substance: BELANTAMAB MAFODOTIN
     Dosage: 1/92 KG/MG
     Dates: start: 20200813

REACTIONS (6)
  - Visual impairment [Not Recovered/Not Resolved]
  - Keratopathy [Not Recovered/Not Resolved]
  - Neoplasm malignant [Not Recovered/Not Resolved]
  - Benign neoplasm [Not Recovered/Not Resolved]
  - Ileus [Not Recovered/Not Resolved]
  - Keratopathy [Not Recovered/Not Resolved]

NARRATIVE: CASE EVENT DATE: 20200610
